FAERS Safety Report 8780024 (Version 1)
Quarter: 2012Q4

REPORT INFORMATION
  Report Type: 
  Country: US (occurrence: US)
  Receive Date: 20120912
  Receipt Date: 20120912
  Transmission Date: 20130627
  Serious: No
  Sender: FDA-Public Use
  Company Number: US-VERTEX PHARMACEUTICAL INC.-AE-2012-005689

PATIENT

DRUGS (11)
  1. INCIVEK [Suspect]
     Indication: HEPATITIS C
     Route: 048
     Dates: start: 20120319
  2. RIBAVIRIN [Concomitant]
     Indication: HEPATITIS C
     Route: 048
     Dates: start: 20120319, end: 20120418
  3. RIBAVIRIN [Concomitant]
     Route: 048
     Dates: start: 20120419
  4. PEGASYS [Concomitant]
     Indication: HEPATITIS C
     Route: 058
     Dates: start: 20120319, end: 20120514
  5. PEGASYS [Concomitant]
     Route: 058
     Dates: start: 20120521
  6. MS COTIN [Concomitant]
     Indication: PAIN
     Route: 048
  7. KLONOPIN [Concomitant]
     Indication: CONVULSION
     Route: 048
  8. PROZAC [Concomitant]
     Route: 048
  9. FLUOXETINE [Concomitant]
  10. IBUPROFEN [Concomitant]
  11. ACYLCOVIR [Concomitant]

REACTIONS (13)
  - Drug dose omission [Recovered/Resolved]
  - Pancytopenia [Not Recovered/Not Resolved]
  - Hypoproteinaemia [Not Recovered/Not Resolved]
  - Thinking abnormal [Not Recovered/Not Resolved]
  - Memory impairment [Not Recovered/Not Resolved]
  - Diarrhoea infectious [Recovered/Resolved]
  - Influenza like illness [Not Recovered/Not Resolved]
  - Productive cough [Not Recovered/Not Resolved]
  - Pyrexia [Recovered/Resolved]
  - Nasopharyngitis [Not Recovered/Not Resolved]
  - Haemoglobin decreased [Not Recovered/Not Resolved]
  - Nausea [Not Recovered/Not Resolved]
  - Vomiting [Unknown]
